FAERS Safety Report 6124256-2 (Version None)
Quarter: 2009Q1

REPORT INFORMATION
  Report Type: 
  Country: None (occurrence: None)
  Receive Date: 20090319
  Receipt Date: 20090311
  Transmission Date: 20090719
  Serious: Yes (Other)
  Sender: FDA-Public Use
  Company Number: IL-WATSON-2009-01656

PATIENT
  Age: 51 Year
  Sex: Female
  Weight: 64 kg

DRUGS (1)
  1. MORPHINE SULFATE INJ [Suspect]
     Indication: ANALGESIA
     Dosage: 0.5 MG
     Route: 037

REACTIONS (1)
  - ENCEPHALOPATHY [None]
